FAERS Safety Report 9275307 (Version 1)
Quarter: 2013Q2

REPORT INFORMATION
  Report Type: Spontaneous
  Country: US (occurrence: US)
  Receive Date: 20130507
  Receipt Date: 20130507
  Transmission Date: 20140414
  Serious: Yes (Other)
  Sender: FDA-Public Use
  Company Number: US-PFIZER INC-2013136232

PATIENT
  Sex: Male

DRUGS (1)
  1. INLYTA [Suspect]
     Indication: THYROID CANCER
     Dosage: UNK

REACTIONS (9)
  - Autoimmune disorder [Unknown]
  - Off label use [Unknown]
  - Joint swelling [Unknown]
  - Arthritis [Unknown]
  - Arthralgia [Unknown]
  - Effusion [Unknown]
  - Inflammation [Unknown]
  - Neuropathy peripheral [Unknown]
  - Burning sensation [Unknown]
